FAERS Safety Report 8197838-4 (Version None)
Quarter: 2012Q1

REPORT INFORMATION
  Report Type: 
  Country: None (occurrence: None)
  Receive Date: 20120307
  Receipt Date: 20120223
  Transmission Date: 20120608
  Serious: Yes (Hospitalization, Other)
  Sender: FDA-Public Use
  Company Number: 2010MA002853

PATIENT
  Age: 66 Year
  Sex: Female
  Weight: 72.5755 kg

DRUGS (96)
  1. ALBUTEROL [Concomitant]
  2. CELEBREX [Concomitant]
  3. FLOVENT [Concomitant]
  4. HYDROXYZINE [Concomitant]
  5. LASIX [Concomitant]
  6. PROMETHEGAN [Concomitant]
  7. ROZEREM [Concomitant]
  8. SKELAXIN [Concomitant]
  9. TOPROL-XL [Concomitant]
  10. TRAZODONE HCL [Concomitant]
  11. VANIQA [Concomitant]
  12. VIGAMOX [Concomitant]
  13. VIOXX [Concomitant]
  14. DICYCLOMINE [Concomitant]
  15. DILTIAZEM HCL [Concomitant]
  16. FENTANYL [Concomitant]
  17. FUROSEMIDE [Concomitant]
  18. GLUCOSAMINE [Concomitant]
  19. LEVAQUIN [Concomitant]
  20. MERIDIA [Concomitant]
  21. OXYCONTIN [Concomitant]
  22. PERCOCET [Concomitant]
  23. PREDNISONE [Concomitant]
  24. TRAMADOL HCL [Concomitant]
  25. ULTRACET [Concomitant]
  26. BACTRIM [Concomitant]
  27. BUPROPION HYDROCHLORIDE [Concomitant]
  28. CARTIA XT [Concomitant]
  29. CEPHALEXIN [Concomitant]
  30. BETAMETHASONE [Concomitant]
  31. DIAMOX SRC [Concomitant]
  32. DICLOFENAC SODIUM [Concomitant]
  33. ASPIRIN [Concomitant]
  34. EFFEXOR [Concomitant]
  35. NASACORT [Concomitant]
  36. NASONEX [Concomitant]
  37. TRIAMTERENE AND HYDROCHLOROTHIAZIDE [Concomitant]
  38. ACETAMINOPHEN [Concomitant]
  39. METOCLOPRAMIDE HYDROCHLORIDE [Suspect]
     Indication: GASTROOESOPHAGEAL REFLUX DISEASE
     Dosage: 5 MG; TID; PO
     Route: 048
     Dates: start: 20010911, end: 20100105
  40. ACETAMINOPHEN [Concomitant]
  41. ADVAIR DISKUS 100/50 [Concomitant]
  42. AMITRIPTYLINE HCL [Concomitant]
  43. ATENOLOL [Concomitant]
  44. LISINOPRIL [Concomitant]
  45. MELATONIN [Concomitant]
  46. MUCINEX [Concomitant]
  47. NICOTINE [Concomitant]
  48. PPA/GUAIFENESIN [Concomitant]
  49. PREVACID [Concomitant]
  50. TRIAMCINOLONE [Concomitant]
  51. ZITHROMAX [Concomitant]
  52. CHERATUSSIN AC [Concomitant]
  53. CLARINEX [Concomitant]
  54. DELESTROGEN [Concomitant]
  55. ESTER [Concomitant]
  56. KETOCONAZOLE [Concomitant]
  57. MEDROXYPROGESTERONE [Concomitant]
  58. Q-TUSSIN DM [Concomitant]
  59. VALERIAN [Concomitant]
  60. ZYMAR [Concomitant]
  61. AMBIEN [Concomitant]
  62. AVELOX [Concomitant]
  63. BIAXIN [Concomitant]
  64. FISH OIL [Concomitant]
  65. NAPROXEN [Concomitant]
  66. NORCO [Concomitant]
  67. SUCRALFATE [Concomitant]
  68. AZITHROMYCIN [Concomitant]
  69. BACTROBAN [Concomitant]
  70. CLOTRIMAZOLE [Concomitant]
  71. FAMOTIDINE [Concomitant]
  72. HYDROCODONE BITARTRATE AND ACETAMINOPHEN [Concomitant]
  73. MORPHINE SULFATE [Concomitant]
  74. LEXAPRO [Concomitant]
  75. LUNESTA [Concomitant]
  76. NEXIUM [Concomitant]
  77. NITROGLYCERIN [Concomitant]
  78. ONDANSETRON [Concomitant]
  79. PRAVASTATIN [Concomitant]
  80. PREDNISOLONE [Concomitant]
  81. PREMARIN [Concomitant]
  82. PREMETHAZINE [Concomitant]
  83. SULFAMETHOXAZOLE/TRIMETROPRIM [Concomitant]
  84. TEMAZEPAM [Concomitant]
  85. VERAPAMIL [Concomitant]
  86. VICODIN [Concomitant]
  87. ASPIRIN [Concomitant]
  88. CIPROFLOXACIN [Concomitant]
  89. ERYTHROMYCIN [Concomitant]
  90. HYDROCHLOROTHIAZIDE [Concomitant]
  91. HYDROCORTISONE [Concomitant]
  92. LYRICA [Concomitant]
  93. POTASSIUM [Concomitant]
  94. PREMPRO [Concomitant]
  95. PROCHLORPERAZINE [Concomitant]
  96. SIMVASTATIN [Concomitant]

REACTIONS (52)
  - CHEST DISCOMFORT [None]
  - DYSPNOEA EXERTIONAL [None]
  - NAUSEA [None]
  - ARTHRALGIA [None]
  - LEFT VENTRICULAR DYSFUNCTION [None]
  - ABDOMINAL DISTENSION [None]
  - FATIGUE [None]
  - ALOPECIA [None]
  - COSTOCHONDRITIS [None]
  - SCOLIOSIS [None]
  - TARDIVE DYSKINESIA [None]
  - EMOTIONAL DISORDER [None]
  - INJURY [None]
  - FALL [None]
  - DYSARTHRIA [None]
  - CHRONIC OBSTRUCTIVE PULMONARY DISEASE [None]
  - HYPOKALAEMIA [None]
  - HYPOAESTHESIA [None]
  - VENTRICULAR EXTRASYSTOLES [None]
  - HYPERTENSION [None]
  - BACK PAIN [None]
  - VENTRICULAR TACHYCARDIA [None]
  - DYSPHAGIA [None]
  - DIARRHOEA [None]
  - DYSPNOEA [None]
  - VOMITING [None]
  - MENISCUS LESION [None]
  - TREMOR [None]
  - IRRITABLE BOWEL SYNDROME [None]
  - DEPRESSION [None]
  - ABDOMINAL PAIN [None]
  - MYOCARDIAL INFARCTION [None]
  - REFLUX GASTRITIS [None]
  - MUSCULAR WEAKNESS [None]
  - RESTLESS LEGS SYNDROME [None]
  - CHOKING [None]
  - INCONTINENCE [None]
  - OEDEMA PERIPHERAL [None]
  - GLAUCOMA [None]
  - EXTRAPYRAMIDAL DISORDER [None]
  - WEIGHT DECREASED [None]
  - JOINT ABSCESS [None]
  - COUGH [None]
  - HYPERLIPIDAEMIA [None]
  - DYSKINESIA [None]
  - INSOMNIA [None]
  - ABDOMINAL PAIN UPPER [None]
  - GRIMACING [None]
  - ERYTHEMA [None]
  - EMPHYSEMA [None]
  - RENAL CYST [None]
  - ECONOMIC PROBLEM [None]
